FAERS Safety Report 24405005 (Version 1)
Quarter: 2024Q4

REPORT INFORMATION
  Report Type: Spontaneous
  Country: US (occurrence: None)
  Receive Date: 20241005
  Receipt Date: 20241005
  Transmission Date: 20250114
  Serious: Yes (Hospitalization)
  Sender: Public
  Company Number: None

PATIENT
  Age: 71 Year
  Sex: Female
  Weight: 64.8 kg

DRUGS (2)
  1. GEMCITABINE HYDROCHLORIDE [Suspect]
     Active Substance: GEMCITABINE HYDROCHLORIDE
  2. PACLITAXEL [Suspect]
     Active Substance: PACLITAXEL

REACTIONS (5)
  - Subdural haematoma [None]
  - Fall [None]
  - Head injury [None]
  - Unresponsive to stimuli [None]
  - Pyrexia [None]

NARRATIVE: CASE EVENT DATE: 20220922
